FAERS Safety Report 15702580 (Version 1)
Quarter: 2018Q4

REPORT INFORMATION
  Report Type: Spontaneous
  Country: US (occurrence: US)
  Receive Date: 20181210
  Receipt Date: 20181210
  Transmission Date: 20190205
  Serious: No
  Sender: FDA-Public Use
  Company Number: US-KYOWAKIRIN-2018BKK001805

PATIENT

DRUGS (2)
  1. SANCUSO [Suspect]
     Active Substance: GRANISETRON
     Indication: NAUSEA
  2. SANCUSO [Suspect]
     Active Substance: GRANISETRON
     Indication: IMPAIRED GASTRIC EMPTYING
     Dosage: USE FOR 7 DAYS
     Route: 062
     Dates: start: 201803, end: 20180608

REACTIONS (7)
  - Pain in extremity [Unknown]
  - Skin haemorrhage [Unknown]
  - Blister rupture [Unknown]
  - Rash pustular [Unknown]
  - Application site vesicles [Unknown]
  - Product use in unapproved indication [Recovered/Resolved]
  - Product adhesion issue [Unknown]

NARRATIVE: CASE EVENT DATE: 2018
